FAERS Safety Report 15083873 (Version 1)
Quarter: 2018Q2

REPORT INFORMATION
  Report Type: Report from Study
  Country: CA (occurrence: CA)
  Receive Date: 20180628
  Receipt Date: 20180628
  Transmission Date: 20180711
  Serious: Yes (Other)
  Sender: FDA-Public Use
  Company Number: CA-JNJFOC-20180627877

PATIENT
  Age: 18 Year
  Sex: Male

DRUGS (1)
  1. STELARA [Suspect]
     Active Substance: USTEKINUMAB
     Indication: CROHN^S DISEASE
     Dosage: STRENGTH = 90 MG
     Route: 058
     Dates: start: 20170315

REACTIONS (4)
  - Anal abscess [Unknown]
  - Off label use [Unknown]
  - Product use issue [Unknown]
  - Anal fistula [Unknown]

NARRATIVE: CASE EVENT DATE: 20170315
